FAERS Safety Report 5047134-9 (Version None)
Quarter: 2006Q3

REPORT INFORMATION
  Report Type: 
  Country: None (occurrence: None)
  Receive Date: 20060703
  Receipt Date: 20060619
  Transmission Date: 20061208
  Serious: Yes (Hospitalization, Other)
  Sender: FDA-Public Use
  Company Number: 2006034468

PATIENT
  Age: 54 Year
  Sex: Male
  Weight: 85 kg

DRUGS (24)
  1. SILDENAFIL (PAH)  (SILDENAFIL) [Suspect]
     Indication: PULMONARY HYPERTENSION
     Dosage: 240 MG (80 MG, 3 IN 1 D), ORAL
     Route: 048
     Dates: start: 20030903
  2. FLOLAN [Concomitant]
  3. TRACLEER [Concomitant]
  4. LESCOL [Concomitant]
  5. CALCIUM CARBONATE (CALCIUM CARBONATE) [Concomitant]
  6. MAGNESIUM CARBONATE (MAGNESIUM CARBONATE) [Concomitant]
  7. SODIUM HYDROGEN CARBONATE (SODIUM BICARBONATE) [Concomitant]
  8. SACCHAROMYCES BOULARDII (SACCHAROMYCES BOULARDII) [Concomitant]
  9. EPOETIN BETA (EPOETIN BETA) [Concomitant]
  10. MYOLASTAN (TETRAZEPAM) [Concomitant]
  11. MULTIVITAMINS, COMBINATIONS (MULTIVITAMINS, COMBINATIONS) [Concomitant]
  12. ENGERIX-B [Concomitant]
  13. LOPERAMIDE HCL [Concomitant]
  14. IRON PREPARATIONS (IRON PREPARATIONS) [Concomitant]
  15. LITICAN (ALIZAPRIDE) [Concomitant]
  16. HYOSCINE HBR HYT [Concomitant]
  17. ZESTRIL [Concomitant]
  18. PANTOZOL (PANTOPRAZOLE SODIUM) [Concomitant]
  19. FUROSEMIDE [Concomitant]
  20. PHENPROCOUMON (PHENPROCOUMON) [Concomitant]
  21. HERBAL NOS/VITAMINS NOS (HERBAL NOS, VITAMINS NOS) [Concomitant]
  22. METRONIDAZOLE (MITRONIDAZOLE) [Concomitant]
  23. ALLOPURINOL [Concomitant]
  24. TREPROSTINOL (TREPROSTINOL) [Concomitant]

REACTIONS (18)
  - BRADYCARDIA [None]
  - C-REACTIVE PROTEIN INCREASED [None]
  - CRYING [None]
  - DEHYDRATION [None]
  - DIARRHOEA [None]
  - FATIGUE [None]
  - FOAMING AT MOUTH [None]
  - GENERAL PHYSICAL HEALTH DETERIORATION [None]
  - GRAND MAL CONVULSION [None]
  - HYPOTENSION [None]
  - NEPHROTIC SYNDROME [None]
  - PNEUMONIA [None]
  - PNEUMOTHORAX [None]
  - PULMONARY OEDEMA [None]
  - PYREXIA [None]
  - RENAL FAILURE [None]
  - RESPIRATION ABNORMAL [None]
  - VOMITING [None]
